FAERS Safety Report 17667183 (Version 1)
Quarter: 2020Q2

REPORT INFORMATION
  Report Type: Spontaneous
  Country: DE (occurrence: DE)
  Receive Date: 20200414
  Receipt Date: 20200414
  Transmission Date: 20200713
  Serious: No
  Sender: FDA-Public Use
  Company Number: DE-EMD SERONO-9125171

PATIENT
  Age: 39 Year
  Sex: Female

DRUGS (1)
  1. MAVENCLAD [Suspect]
     Active Substance: CLADRIBINE
     Indication: RELAPSING-REMITTING MULTIPLE SCLEROSIS
     Dosage: TOOK FIRST DOSE OF TWO TABLETS ON 30 SEP 2019.
     Dates: start: 20190930

REACTIONS (5)
  - Chills [Recovered/Resolved]
  - Oral herpes [Recovering/Resolving]
  - Bacterial vulvovaginitis [Unknown]
  - Menorrhagia [Unknown]
  - Vulvovaginal mycotic infection [Unknown]

NARRATIVE: CASE EVENT DATE: 20190930
